FAERS Safety Report 23531025 (Version 1)
Quarter: 2024Q1

REPORT INFORMATION
  Report Type: Spontaneous
  Country: AT (occurrence: AT)
  Receive Date: 20240216
  Receipt Date: 20240216
  Transmission Date: 20240410
  Serious: Yes (Other)
  Sender: FDA-Public Use
  Company Number: AT-SUN PHARMACEUTICAL INDUSTRIES LTD-2024RR-431666

PATIENT
  Age: 46 Year
  Sex: Female

DRUGS (6)
  1. TRABECTEDIN [Suspect]
     Active Substance: TRABECTEDIN
     Indication: Leiomyosarcoma metastatic
     Dosage: 1.5 MILLIGRAM/SQ. METER (ONCE EVERY 21 DAYS)
     Route: 042
  2. DOXORUBICIN [Suspect]
     Active Substance: DOXORUBICIN
     Indication: Leiomyosarcoma metastatic
     Dosage: 75 MILLIGRAM/SQ. METER (ONCE EVERY 21 DAYS)
     Route: 065
  3. GEMCITABINE [Suspect]
     Active Substance: GEMCITABINE
     Indication: Leiomyosarcoma metastatic
     Dosage: 1800 MILLIGRAM/SQ. METER (ONCE EVERY 14 DAYS)
     Route: 042
     Dates: start: 202211
  4. GEMCITABINE [Suspect]
     Active Substance: GEMCITABINE
     Dosage: 1000 MILLIGRAM/SQ. METER (ONCE EVERY 14 DAYS)
     Route: 042
     Dates: start: 202211
  5. PAZOPANIB [Suspect]
     Active Substance: PAZOPANIB
     Indication: Leiomyosarcoma metastatic
     Dosage: 400 MILLIGRAM, DAILY (FOR 7 DAYS)
     Route: 065
  6. DACARBAZINE [Suspect]
     Active Substance: DACARBAZINE
     Indication: Leiomyosarcoma metastatic
     Dosage: 500 MILLIGRAM/SQ. METER (ONCE EVERY 14 DAYS)
     Route: 042

REACTIONS (4)
  - Disease progression [Unknown]
  - Adverse event [Unknown]
  - General physical health deterioration [Unknown]
  - Therapeutic product effect incomplete [Unknown]
